FAERS Safety Report 15945768 (Version 1)
Quarter: 2019Q1

REPORT INFORMATION
  Report Type: Spontaneous
  Country: DK (occurrence: DK)
  Receive Date: 20190211
  Receipt Date: 20190211
  Transmission Date: 20190417
  Serious: Yes (Life-Threatening, Hospitalization)
  Sender: FDA-Public Use
  Company Number: DK-B.I. PHARMACEUTICALS,INC./RIDGEFIELD-2019-12-000469

PATIENT
  Age: 92 Year
  Sex: Male

DRUGS (8)
  1. FINASTERIDE. [Concomitant]
     Active Substance: FINASTERIDE
     Indication: DYSURIA
     Route: 048
     Dates: start: 20150722
  2. ALENDRONIC ACID [Concomitant]
     Active Substance: ALENDRONIC ACID
     Indication: OSTEOPOROSIS
     Route: 048
     Dates: start: 20131119
  3. PANODIL [Concomitant]
     Active Substance: ACETAMINOPHEN
     Indication: PAIN
     Dosage: STRENGTH: 665 MG.
     Route: 048
     Dates: start: 20151211
  4. METOPROLOL. [Concomitant]
     Active Substance: METOPROLOL
     Indication: HYPERTENSION
     Dosage: STRENGTH: 50 MG.
     Route: 048
     Dates: start: 20131119
  5. SODIUM CROMOGLICATE [Concomitant]
     Active Substance: CROMOLYN SODIUM
     Indication: CONJUNCTIVITIS ALLERGIC
     Dosage: 20 MG/ML. 1 DROP, 2 TIMES DAILY IN BOTH EYES.
     Route: 050
     Dates: start: 20170328
  6. LATANOPROST. [Concomitant]
     Active Substance: LATANOPROST
     Indication: GLAUCOMA
     Dosage: 50 MICROGRAM/ML., 1 DROP EVENING IN BOTH EYES
     Route: 050
     Dates: start: 20170328
  7. PRADAXA [Suspect]
     Active Substance: DABIGATRAN ETEXILATE MESYLATE
     Indication: ATRIAL FIBRILLATION
     Route: 048
     Dates: start: 20170710, end: 20190120
  8. LOSARTANKALIUM/HYDROCHLOORTHIAZIDE [Concomitant]
     Indication: HYPERTENSION
     Dosage: 100+25 MG
     Route: 048
     Dates: start: 20131119

REACTIONS (8)
  - Acute kidney injury [Not Recovered/Not Resolved]
  - Haemorrhage [Not Recovered/Not Resolved]
  - Rhabdomyolysis [Not Recovered/Not Resolved]
  - Haemoglobin decreased [Not Recovered/Not Resolved]
  - Coagulopathy [Not Recovered/Not Resolved]
  - Blood creatine increased [Not Recovered/Not Resolved]
  - Haemodialysis [Not Recovered/Not Resolved]
  - Altered state of consciousness [Unknown]

NARRATIVE: CASE EVENT DATE: 201901
